FAERS Safety Report 25987923 (Version 2)
Quarter: 2025Q4

REPORT INFORMATION
  Report Type: Report from Study
  Country: GB (occurrence: GB)
  Receive Date: 20251103
  Receipt Date: 20251121
  Transmission Date: 20260118
  Serious: Yes (Hospitalization)
  Sender: ROCHE
  Company Number: GB-ROCHE-10000417119

PATIENT
  Age: 87 Year
  Sex: Female
  Weight: 82.56 kg

DRUGS (24)
  1. FARICIMAB [Suspect]
     Active Substance: FARICIMAB
     Indication: Neovascular age-related macular degeneration
     Route: 050
     Dates: start: 20240924
  2. HYLO- TEAR EYE DROPS 0.1% [Concomitant]
     Indication: Dry eye
     Route: 047
     Dates: start: 20190812
  3. OPATANOL EYE DROPS [Concomitant]
     Indication: Conjunctivitis allergic
     Route: 047
     Dates: start: 20190812
  4. BISOPROLOL [Concomitant]
     Active Substance: BISOPROLOL
     Indication: Hypertension
     Route: 048
     Dates: start: 20241002
  5. CANDESARTAN [Concomitant]
     Active Substance: CANDESARTAN
     Indication: Hypertension
     Route: 048
     Dates: start: 20241002
  6. CARBOCYSTEINE [Concomitant]
     Active Substance: CARBOCYSTEINE
     Indication: Chronic obstructive pulmonary disease
     Route: 048
     Dates: start: 20241002
  7. CLINOPTIC EYE DROPS (SODIUM HYALURONATE 0.21%) [Concomitant]
     Indication: Dry eye
     Route: 047
     Dates: start: 20241002
  8. FEXOFENADINE [Concomitant]
     Active Substance: FEXOFENADINE HYDROCHLORIDE
     Route: 048
     Dates: start: 20241002
  9. FUROSEMIDE [Concomitant]
     Active Substance: FUROSEMIDE
     Indication: Acute kidney injury
     Dates: start: 20241002
  10. NITROGLYCERIN [Concomitant]
     Active Substance: NITROGLYCERIN
     Dosage: 1 PUFF
     Dates: start: 20241002
  11. IVABRADINE [Concomitant]
     Active Substance: IVABRADINE
     Dosage: 1 PUFF
     Dates: start: 20241002
  12. LANSOPRAZOLE [Concomitant]
     Active Substance: LANSOPRAZOLE
     Dosage: 1 PUFF
     Dates: start: 20241002
  13. LEVOTHYROXINE [Concomitant]
     Active Substance: LEVOTHYROXINE
     Dosage: 1 PUFF
     Route: 048
     Dates: start: 20241002
  14. LUFORBEC INHALER [Concomitant]
     Indication: Asthma
     Dosage: 1 PUFF
     Route: 055
     Dates: start: 20241002
  15. MIRABEGRON [Concomitant]
     Active Substance: MIRABEGRON
     Dosage: 1 PUFF
     Dates: start: 20241002
  16. MIRTAZAPINE [Concomitant]
     Active Substance: MIRTAZAPINE
     Dosage: 1 PUFF
     Dates: start: 20241002
  17. PREDNISOLONE [Concomitant]
     Active Substance: PREDNISOLONE
     Dosage: 1 PUFF
     Dates: start: 20241002
  18. RIVAROXABAN [Concomitant]
     Active Substance: RIVAROXABAN
     Dosage: 1 PUFF
     Dates: start: 20240906
  19. SIMVASTATIN [Concomitant]
     Active Substance: SIMVASTATIN
     Dosage: 1 PUFF
     Route: 048
     Dates: start: 20240906
  20. HYDROXOCOBVALAMIN [Concomitant]
     Dosage: 1 PUFF
     Dates: start: 20230216
  21. CHLORAMPHENICOL 0.5% DROPS [Concomitant]
     Indication: Iridocyclitis
     Dosage: 1 PUFF
     Route: 047
     Dates: start: 20250725, end: 20250726
  22. MAXIDEX [Concomitant]
     Active Substance: DEXAMETHASONE
     Indication: Iridocyclitis
     Dosage: 1 PUFF
     Route: 047
     Dates: start: 20250726
  23. CYCLO 1% EYE DROPS [Concomitant]
     Indication: Iridocyclitis
     Dosage: 1 PUFF
     Route: 047
     Dates: start: 20250726
  24. HYLOFORTE [Concomitant]
     Indication: Iridocyclitis
     Dosage: 1 PUFF
     Route: 047
     Dates: start: 20250726

REACTIONS (1)
  - Transient ischaemic attack [Recovered/Resolved]

NARRATIVE: CASE EVENT DATE: 20251018
